FAERS Safety Report 4299845-0 (Version None)
Quarter: 2004Q1

REPORT INFORMATION
  Report Type: 
  Country: None (occurrence: None)
  Receive Date: 20040217
  Receipt Date: 20040217
  Transmission Date: 20041129
  Serious: Yes (Disabling, Other)
  Sender: FDA-Public Use
  Company Number: None

PATIENT
  Age: 42 Year
  Sex: Male
  Weight: 95.2554 kg

DRUGS (1)
  1. COLD-EEZE ZINCUM GLUCONICUM 1X3.36% THE QUIGLEY CORP [Suspect]
     Indication: NASOPHARYNGITIS
     Dosage: 1-2  SPRAYS 6X PER DAY NASAL
     Route: 045
     Dates: start: 20031211, end: 20041223

REACTIONS (1)
  - ANOSMIA [None]
